FAERS Safety Report 8536197-1 (Version None)
Quarter: 2012Q3

REPORT INFORMATION
  Report Type: 
  Country: None (occurrence: None)
  Receive Date: 20120725
  Receipt Date: 20120717
  Transmission Date: 20120928
  Serious: No
  Sender: FDA-Public Use
  Company Number: US-ASTRAZENECA-2012SE49782

PATIENT
  Sex: Female

DRUGS (1)
  1. NEXIUM [Suspect]
     Route: 048

REACTIONS (6)
  - DIARRHOEA [None]
  - ARTHRALGIA [None]
  - BACK PAIN [None]
  - ABDOMINAL PAIN UPPER [None]
  - HEADACHE [None]
  - OFF LABEL USE [None]
